FAERS Safety Report 8615791-3 (Version None)
Quarter: 2012Q3

REPORT INFORMATION
  Report Type: 
  Country: None (occurrence: None)
  Receive Date: 20120823
  Receipt Date: 20120820
  Transmission Date: 20120928
  Serious: Yes (Other)
  Sender: FDA-Public Use
  Company Number: US-PFIZER INC-2012150772

PATIENT
  Sex: Female

DRUGS (1)
  1. NEURONTIN [Suspect]
     Dosage: UNK

REACTIONS (3)
  - DISTURBANCE IN ATTENTION [None]
  - IMPAIRED DRIVING ABILITY [None]
  - MENTAL IMPAIRMENT [None]
